FAERS Safety Report 15643965 (Version 2)
Quarter: 2019Q1

REPORT INFORMATION
  Report Type: Spontaneous
  Country: CZ (occurrence: CZ)
  Receive Date: 20181121
  Receipt Date: 20190125
  Transmission Date: 20190417
  Serious: Yes (Other)
  Sender: FDA-Public Use
  Company Number: CZ-ROCHE-2215272

PATIENT
  Age: 69 Year
  Sex: Male

DRUGS (12)
  1. AVASTIN [Suspect]
     Active Substance: BEVACIZUMAB
     Indication: COLON CANCER METASTATIC
     Dosage: AS PART OF FOLFOX PLUS BEVACIZUMAB
     Route: 065
     Dates: start: 20101129, end: 20110412
  2. AVASTIN [Suspect]
     Active Substance: BEVACIZUMAB
     Dosage: AS PART OF FOLFOX4 PLUS BEVACIZUMAB
     Route: 065
     Dates: start: 20150311, end: 2015
  3. OXALIPLATIN. [Suspect]
     Active Substance: OXALIPLATIN
     Dosage: AS PART OF FOLFOX4 PLUS BEVACIZUMAB
     Route: 065
     Dates: start: 20150311, end: 2015
  4. ERBITUX [Concomitant]
     Active Substance: CETUXIMAB
     Route: 065
     Dates: start: 20150414, end: 201704
  5. 5-FLUOROURACIL [Suspect]
     Active Substance: FLUOROURACIL
     Dosage: AS PART OF FOLFIRI THERAPY
     Route: 065
     Dates: start: 20150414, end: 201510
  6. 5-FLUOROURACIL [Suspect]
     Active Substance: FLUOROURACIL
     Indication: COLON CANCER METASTATIC
     Dosage: AS PART OF FOLFOX PLUS BEVACIZUMAB
     Route: 065
     Dates: start: 20101129, end: 20110412
  7. 5-FLUOROURACIL [Suspect]
     Active Substance: FLUOROURACIL
     Dosage: AS PART OF FOLFOX4 PLUS BEVACIZUMAB
     Route: 065
     Dates: start: 20150311, end: 2015
  8. FOLINIC ACID [Suspect]
     Active Substance: LEUCOVORIN
     Indication: COLON CANCER METASTATIC
     Dosage: AS PART OF FOLFOX PLUS BEVACIZUMAB
     Route: 065
     Dates: start: 20101129, end: 20110412
  9. FOLINIC ACID [Suspect]
     Active Substance: LEUCOVORIN
     Dosage: AS PART OF FOLFIRI THERAPY
     Route: 065
     Dates: start: 201504, end: 201510
  10. OXALIPLATIN. [Suspect]
     Active Substance: OXALIPLATIN
     Indication: COLON CANCER METASTATIC
     Dosage: AS PART OF FOLFOX PLUS BEVACIZUMAB
     Route: 065
     Dates: start: 20101129, end: 20110412
  11. FOLINIC ACID [Suspect]
     Active Substance: LEUCOVORIN
     Dosage: AS PART OF FOLFOX4 PLUS BEVACIZUMAB
     Route: 065
     Dates: start: 20150311, end: 2015
  12. LONSURF [Concomitant]
     Active Substance: TIPIRACIL HYDROCHLORIDE\TRIFLURIDINE

REACTIONS (3)
  - Anaemia [Unknown]
  - Neutropenia [Unknown]
  - Cholecystitis acute [Unknown]

NARRATIVE: CASE EVENT DATE: 201503
